FAERS Safety Report 5004913-1 (Version None)
Quarter: 2006Q1

REPORT INFORMATION
  Report Type: 
  Country: None (occurrence: None)
  Receive Date: 20060321
  Receipt Date: 20060208
  Transmission Date: 20060701
  Serious: No
  Sender: FDA-Public Use
  Company Number: 2006US000353

PATIENT
  Age: 38 Year
  Sex: Female

DRUGS (1)
  1. VESICARE [Suspect]

REACTIONS (1)
  - CONSTIPATION [None]
